FAERS Safety Report 7621179-4 (Version None)
Quarter: 2011Q3

REPORT INFORMATION
  Report Type: 
  Country: None (occurrence: None)
  Receive Date: 20110719
  Receipt Date: 20110705
  Transmission Date: 20111222
  Serious: Yes (Other)
  Sender: FDA-Public Use
  Company Number: JP-GENENTECH-314696

PATIENT

DRUGS (1)
  1. LUCENTIS [Suspect]
     Indication: MACULAR DEGENERATION
     Route: 031

REACTIONS (2)
  - RETINAL PIGMENT EPITHELIAL TEAR [None]
  - INAPPROPRIATE SCHEDULE OF DRUG ADMINISTRATION [None]
